FAERS Safety Report 8026859-7 (Version None)
Quarter: 2011Q4

REPORT INFORMATION
  Report Type: 
  Country: None (occurrence: None)
  Receive Date: 20111130
  Receipt Date: 20110718
  Transmission Date: 20120403
  Serious: Yes (Hospitalization)
  Sender: FDA-Public Use
  Company Number: US201107004444

PATIENT
  Age: 48 Year
  Sex: Male
  Weight: 73.0291 kg

DRUGS (1)
  1. BYETTA [Suspect]

REACTIONS (1)
  - PANCREATITIS [None]
